FAERS Safety Report 16444024 (Version 1)
Quarter: 2019Q2

REPORT INFORMATION
  Report Type: Spontaneous
  Country: GB (occurrence: GB)
  Receive Date: 20190618
  Receipt Date: 20190618
  Transmission Date: 20190711
  Serious: Yes (Hospitalization)
  Sender: FDA-Public Use
  Company Number: GB-ACCORD-133362

PATIENT
  Age: 82 Year
  Sex: Female

DRUGS (18)
  1. FEXOFENADINE/FEXOFENADINE HYDROCHLORIDE [Concomitant]
  2. SALBUTAMOL [Concomitant]
     Active Substance: ALBUTEROL
  3. NITRAZEPAM [Concomitant]
     Active Substance: NITRAZEPAM
  4. FUROSEMIDE. [Suspect]
     Active Substance: FUROSEMIDE
     Indication: CARDIAC FAILURE CONGESTIVE
     Dosage: THERAPY END DATE- 22-APR-2019, IN THE MORNING.
     Route: 048
     Dates: start: 20181001
  5. CLOPIDOGREL [Concomitant]
     Active Substance: CLOPIDOGREL BISULFATE
  6. TRIMBOW [Concomitant]
     Active Substance: BECLOMETHASONE DIPROPIONATE\FORMOTEROL FUMARATE\GLYCOPYRROLATE
  7. LEVOTHYROXINE. [Concomitant]
     Active Substance: LEVOTHYROXINE
  8. SIMVASTATIN. [Concomitant]
     Active Substance: SIMVASTATIN
  9. E45 [Concomitant]
     Active Substance: LANOLIN\LIGHT MINERAL OIL\PARAFFIN
  10. ISOSORBIDE. [Concomitant]
     Active Substance: ISOSORBIDE
  11. CODEINE [Concomitant]
     Active Substance: CODEINE
  12. IVABRADINE/IVABRADINE HYDROCHLORIDE [Concomitant]
  13. IPRATROPIUM [Concomitant]
     Active Substance: IPRATROPIUM
  14. CANDESARTAN. [Concomitant]
     Active Substance: CANDESARTAN
  15. HYDROXYZINE [Concomitant]
     Active Substance: HYDROXYZINE HYDROCHLORIDE
  16. DOCUSATE [Concomitant]
     Active Substance: DOCUSATE
  17. NEBIVOLOL. [Concomitant]
     Active Substance: NEBIVOLOL
  18. GLYCERYL TRINITRATE [Concomitant]
     Active Substance: NITROGLYCERIN

REACTIONS (4)
  - Dyspnoea [Unknown]
  - Delirium [Unknown]
  - Confusional state [Unknown]
  - Acute kidney injury [Recovered/Resolved]

NARRATIVE: CASE EVENT DATE: 20190420
